FAERS Safety Report 8480868 (Version 3)
Quarter: 2013Q2

REPORT INFORMATION
  Report Type: Report from Study
  Country: CA (occurrence: CA)
  Receive Date: 20120328
  Receipt Date: 20130502
  Transmission Date: 20140414
  Serious: Yes (Hospitalization, Other)
  Sender: FDA-Public Use
  Company Number: CA-ABBOTT-12P-028-0918157-00

PATIENT
  Age: 59 Year
  Sex: Male
  Weight: 61.29 kg

DRUGS (8)
  1. HUMIRA 40 MG/ 0.8 ML PRE-FILLED SYRINGE [Suspect]
     Indication: RHEUMATOID ARTHRITIS
     Route: 058
     Dates: start: 20060126, end: 2011
  2. HUMIRA 40 MG/ 0.8 ML PRE-FILLED SYRINGE [Suspect]
     Dates: start: 2011
  3. METHOTREXATE [Concomitant]
     Indication: RHEUMATOID ARTHRITIS
     Route: 058
     Dates: start: 2005
  4. INDOSID [Concomitant]
     Indication: BLOOD POTASSIUM ABNORMAL
  5. UNKNOWN HEART MEDICATION [Concomitant]
     Indication: CARDIAC DISORDER
     Dates: start: 2006
  6. TYLENOL [Concomitant]
     Indication: RHEUMATOID ARTHRITIS
     Route: 048
     Dates: start: 2006
  7. UNKNOWN BLOOD THINNER [Concomitant]
     Indication: ANTICOAGULANT THERAPY
  8. UNKNOWN MEDICATIONS [Concomitant]
     Indication: PRODUCT USED FOR UNKNOWN INDICATION

REACTIONS (6)
  - Arteriosclerosis coronary artery [Recovered/Resolved]
  - Myocardial infarction [Recovered/Resolved]
  - Stab wound [Recovered/Resolved]
  - Post-traumatic stress disorder [Recovered/Resolved]
  - Muscle disorder [Not Recovered/Not Resolved]
  - Pain [Not Recovered/Not Resolved]
